FAERS Safety Report 8047383-1 (Version None)
Quarter: 2012Q1

REPORT INFORMATION
  Report Type: 
  Country: None (occurrence: None)
  Receive Date: 20120116
  Receipt Date: 20120111
  Transmission Date: 20120608
  Serious: Yes (Hospitalization, Other)
  Sender: FDA-Public Use
  Company Number: FR-ABBOTT-12P-056-0892235-00

PATIENT
  Age: 57 Year
  Sex: Male

DRUGS (9)
  1. FLUOROURACIL [Concomitant]
     Indication: PRODUCT USED FOR UNKNOWN INDICATION
     Dates: start: 20111107, end: 20111111
  2. TAXOTERE [Interacting]
     Indication: PRODUCT USED FOR UNKNOWN INDICATION
     Dates: start: 20111107, end: 20111107
  3. NORVIR [Suspect]
     Indication: HIV INFECTION
     Dates: start: 19980101
  4. ATAZANAVIR [Concomitant]
     Indication: HIV INFECTION
     Dates: start: 19980101
  5. TRUVADA [Concomitant]
     Indication: HIV INFECTION
  6. RAMIPRIL [Concomitant]
     Indication: HYPERTENSION
  7. ASPIRIN [Concomitant]
     Indication: ISCHAEMIC HEART DISEASE PROPHYLAXIS
     Dates: start: 20030101
  8. ATORVASTATIN CALCIUM [Concomitant]
     Indication: HYPERCHOLESTEROLAEMIA
  9. CISPLATIN [Concomitant]
     Indication: PRODUCT USED FOR UNKNOWN INDICATION
     Dates: start: 20111107, end: 20111107

REACTIONS (4)
  - AGRANULOCYTOSIS [None]
  - ESCHERICHIA SEPSIS [None]
  - THROMBOCYTOPENIA [None]
  - GLOTTIS CARCINOMA [None]
